FAERS Safety Report 8176850-5 (Version None)
Quarter: 2012Q1

REPORT INFORMATION
  Report Type: 
  Country: None (occurrence: None)
  Receive Date: 20120301
  Receipt Date: 20120224
  Transmission Date: 20120608
  Serious: No
  Sender: FDA-Public Use
  Company Number: US-TEVA-325315USA

PATIENT
  Sex: Female
  Weight: 63.56 kg

DRUGS (3)
  1. TRI-SPRINTEC [Concomitant]
     Indication: CONTRACEPTION
     Route: 048
     Dates: start: 20120217
  2. PLAN B ONE-STEP [Suspect]
     Indication: POST COITAL CONTRACEPTION
     Dosage: 1.5 MILLIGRAM;
     Route: 048
     Dates: start: 20120217, end: 20120217
  3. LEVONORGESTREL [Suspect]
     Indication: POST COITAL CONTRACEPTION
     Route: 048
     Dates: start: 20120216

REACTIONS (1)
  - NAUSEA [None]
